FAERS Safety Report 5270144-3 (Version None)
Quarter: 2007Q1

REPORT INFORMATION
  Report Type: 
  Country: None (occurrence: None)
  Receive Date: 20061213
  Receipt Date: 20030912
  Transmission Date: 20070707
  Serious: Yes (Other)
  Sender: FDA-Public Use
  Company Number: 2003UW11262

PATIENT
  Age: 56 Year
  Sex: Female
  Weight: 51.2565 kg

DRUGS (1)
  1. IRESSA [Suspect]
     Indication: NON-SMALL CELL LUNG CANCER
     Dates: start: 20030701

REACTIONS (8)
  - CHEST DISCOMFORT [None]
  - DRY SKIN [None]
  - DYSPHONIA [None]
  - HERPES SIMPLEX [None]
  - NASAL CONGESTION [None]
  - PARAESTHESIA [None]
  - RASH [None]
  - SOMNOLENCE [None]
